FAERS Safety Report 7811697 (Version 2)
Quarter: 2013Q2

REPORT INFORMATION
  Report Type: Report from Study
  Country: JP (occurrence: JP)
  Receive Date: 20110214
  Receipt Date: 20130522
  Transmission Date: 20140414
  Serious: Yes (Other)
  Sender: FDA-Public Use
  Company Number: PHHY2011JP08338

PATIENT
  Age: 59 Year
  Sex: Female
  Weight: 42 kg

DRUGS (20)
  1. ICL670A [Suspect]
     Indication: IRON OVERLOAD
     Dosage: 500 MG, DAILY
     Route: 048
     Dates: start: 20091119, end: 20091130
  2. ICL670A [Suspect]
     Dosage: 500 MG, DAILY
     Route: 048
     Dates: start: 20100121, end: 20100630
  3. ICL670A [Suspect]
     Dosage: 500 MG, DAILY
     Route: 048
     Dates: start: 20100826, end: 20100929
  4. BONZOL [Suspect]
     Indication: APLASTIC ANAEMIA
     Dosage: 200 MG, DAILY
     Route: 048
     Dates: start: 20091210
  5. MIYA BM [Concomitant]
     Dosage: 3 G, UNK
     Route: 048
     Dates: start: 20100601
  6. PREMARIN [Concomitant]
     Dosage: 0.625 MG, UNK
     Route: 048
     Dates: start: 20100608
  7. PREMARIN [Concomitant]
     Dosage: 1.25 MG, UNK
     Route: 048
  8. PREMARIN [Concomitant]
     Dosage: 2.5 MG, UNK
     Route: 048
  9. PREMARIN [Concomitant]
     Dosage: 1.25 MG
     Route: 048
  10. PREMARIN [Concomitant]
     Dosage: 0.625 MG, UNK
     Route: 048
  11. PREMARIN [Concomitant]
     Dosage: 0.625 MG, UNK
     Route: 048
  12. PREMARIN [Concomitant]
     Dosage: 1.875 MG, UNK
     Route: 048
  13. DUPHASTON [Concomitant]
     Dosage: 10 MG, UNK
     Route: 048
     Dates: start: 20100608
  14. DUPHASTON [Concomitant]
     Dosage: 10 MG, UNK
     Route: 048
  15. DUPHASTON [Concomitant]
     Dosage: 20 MG, UNK
     Route: 048
  16. DUPHASTON [Concomitant]
     Dosage: 10 MG, UNK
     Route: 048
  17. DUPHASTON [Concomitant]
     Dosage: 5 MG, UNK
     Route: 048
  18. DUPHASTON [Concomitant]
     Dosage: 5 MG, UNK
     Route: 048
  19. DUPHASTON [Concomitant]
     Dosage: 10 MG, UNK
     Route: 048
  20. DUPHASTON [Concomitant]
     Dosage: 10 MG, UNK
     Route: 048

REACTIONS (2)
  - Papule [Recovering/Resolving]
  - Renal impairment [Recovered/Resolved]
